FAERS Safety Report 14375636 (Version 1)
Quarter: 2018Q1

REPORT INFORMATION
  Report Type: Spontaneous
  Country: US (occurrence: US)
  Receive Date: 20180110
  Receipt Date: 20180110
  Transmission Date: 20180509
  Serious: Yes (Life-Threatening, Hospitalization, Other)
  Sender: FDA-Public Use
  Company Number: None

PATIENT
  Age: 71 Year
  Sex: Female
  Weight: 49.3 kg

DRUGS (5)
  1. LORAZEPAM. [Concomitant]
     Active Substance: LORAZEPAM
  2. BENADRYL [Concomitant]
     Active Substance: DIPHENHYDRAMINE HYDROCHLORIDE
  3. MORPHINE [Concomitant]
     Active Substance: MORPHINE
  4. HALOPERIDOL INJECTION [Suspect]
     Active Substance: HALOPERIDOL
     Indication: AGITATION
     Route: 040
     Dates: start: 20171127, end: 20171127
  5. FENTANYL. [Concomitant]
     Active Substance: FENTANYL

REACTIONS (4)
  - Seizure [None]
  - Cardio-respiratory arrest [None]
  - Torsade de pointes [None]
  - Therapy non-responder [None]

NARRATIVE: CASE EVENT DATE: 20171127
